FAERS Safety Report 6453472-5 (Version None)
Quarter: 2009Q4

REPORT INFORMATION
  Report Type: 
  Country: None (occurrence: None)
  Receive Date: 20091124
  Receipt Date: 20091116
  Transmission Date: 20100525
  Serious: Yes (Hospitalization)
  Sender: FDA-Public Use
  Company Number: FR-ROCHE-669156

PATIENT
  Sex: Male
  Weight: 55 kg

DRUGS (6)
  1. PEGASYS [Suspect]
     Route: 065
  2. COPEGUS [Suspect]
     Route: 065
  3. AERIUS [Concomitant]
     Dates: start: 20090812
  4. AVLOCARDYL [Concomitant]
     Dates: start: 20090705
  5. NEXIUM [Concomitant]
     Dates: start: 20090705
  6. STILNOX [Concomitant]
     Indication: INSOMNIA

REACTIONS (1)
  - SQUAMOUS CELL CARCINOMA [None]
